FAERS Safety Report 7591475-8 (Version None)
Quarter: 2011Q3

REPORT INFORMATION
  Report Type: 
  Country: None (occurrence: None)
  Receive Date: 20110701
  Receipt Date: 20110701
  Transmission Date: 20111222
  Serious: Yes (Hospitalization, Other)
  Sender: FDA-Public Use
  Company Number: None

PATIENT
  Sex: Male
  Weight: 58.0604 kg

DRUGS (1)
  1. APRISO [Suspect]
     Indication: COLITIS ULCERATIVE
     Dosage: 6CAPS/DAY THEN 4CAPS/DAY 1X/DAY PO
     Route: 048
     Dates: start: 20110515, end: 20110610

REACTIONS (7)
  - CONDITION AGGRAVATED [None]
  - COLITIS ULCERATIVE [None]
  - IRRITABILITY [None]
  - ANAEMIA [None]
  - WEIGHT DECREASED [None]
  - HAEMORRHAGE [None]
  - SINUSITIS [None]
